FAERS Safety Report 7903226-5 (Version None)
Quarter: 2011Q4

REPORT INFORMATION
  Report Type: 
  Country: None (occurrence: None)
  Receive Date: 20111109
  Receipt Date: 20111031
  Transmission Date: 20120403
  Serious: Yes (Other)
  Sender: FDA-Public Use
  Company Number: DE-COVIDIEN/TYCO HEALTHCARE/MALLINCKRODT-T201102306

PATIENT
  Age: 47 Year
  Sex: Female

DRUGS (8)
  1. SODIUM IODIDE I 131 [Suspect]
     Dosage: 11.1 GBQ, SINGLE
     Dates: start: 20070118, end: 20070118
  2. SODIUM IODIDE I 131 [Suspect]
     Dosage: 11.0 GBQ, SINGLE
     Dates: start: 20070502, end: 20070502
  3. NEUPOGEN [Suspect]
     Indication: HAEMATOPOIETIC STEM CELL MOBILISATION
     Dosage: 480 ?G DAILY FOR SIX DAYS
  4. SODIUM IODIDE I 131 [Suspect]
     Dosage: 11.2 GBQ, SINGLE
     Dates: start: 20071120, end: 20071120
  5. SODIUM IODIDE I 131 [Suspect]
     Dosage: 11.1 GBQ, SINGLE
     Dates: start: 20080418, end: 20080418
  6. SODIUM IODIDE I 131 [Suspect]
     Indication: METASTASES TO BONE
     Dosage: 4.5 GBQ, SINGLE
     Dates: start: 20061017, end: 20061017
  7. NEUPOGEN [Suspect]
     Dosage: 2 X 480 ?G DAILY FOR SIX DAYS
     Dates: start: 20070425, end: 20070425
  8. STEM CEL FACTO [Suspect]
     Indication: HAEMATOPOIETIC STEM CELL MOBILISATION
     Dosage: 1 X 480 ?G DAILY FOR SIX DAYS
     Dates: start: 20070425, end: 20070425

REACTIONS (2)
  - DRUG INTERACTION [None]
  - PANCYTOPENIA [None]
